FAERS Safety Report 11403596 (Version 1)
Quarter: 2015Q3

REPORT INFORMATION
  Report Type: Spontaneous
  Country: US (occurrence: None)
  Receive Date: 20150820
  Receipt Date: 20150820
  Transmission Date: 20151125
  Serious: Yes (Other)
  Sender: FDA-Public Use
  Company Number: None

PATIENT
  Age: 38 Year
  Sex: Female
  Weight: 95.26 kg

DRUGS (5)
  1. NORCO [Suspect]
     Active Substance: ACETAMINOPHEN\HYDROCODONE BITARTRATE
     Indication: ENDODONTIC PROCEDURE
     Dosage: 1 TO 2 PILLS EVERY 4-6 HOURS
     Route: 048
     Dates: start: 20150818, end: 20150818
  2. IBUPROFEN. [Concomitant]
     Active Substance: IBUPROFEN
  3. TYLENOL [Concomitant]
     Active Substance: ACETAMINOPHEN
  4. AMOXICILLIN. [Concomitant]
     Active Substance: AMOXICILLIN
  5. IRON D3 [Concomitant]

REACTIONS (3)
  - Pruritus [None]
  - Mental disorder [None]
  - Pruritus generalised [None]

NARRATIVE: CASE EVENT DATE: 20150818
